FAERS Safety Report 5041803-2 (Version None)
Quarter: 2006Q2

REPORT INFORMATION
  Report Type: 
  Country: None (occurrence: None)
  Receive Date: 20060630
  Receipt Date: 20060619
  Transmission Date: 20061013
  Serious: No
  Sender: FDA-Public Use
  Company Number: TPA2006A01000

PATIENT

DRUGS (1)
  1. ROZEREM [Suspect]
     Dosage: SEE IMAGE, PER ORAL
     Route: 048

REACTIONS (2)
  - DRUG INEFFECTIVE [None]
  - THERAPY REGIMEN CHANGED [None]
